FAERS Safety Report 20824761 (Version 1)
Quarter: 2022Q2

REPORT INFORMATION
  Report Type: Other
  Country: CA (occurrence: None)
  Receive Date: 20220513
  Receipt Date: 20220513
  Transmission Date: 20220721
  Serious: Yes (Hospitalization)
  Sender: FDA-Public Use
  Company Number: CA-ROCHE-3089019

PATIENT
  Sex: Male

DRUGS (2)
  1. OCRELIZUMAB [Suspect]
     Active Substance: OCRELIZUMAB
     Indication: Product used for unknown indication
     Route: 065
  2. DALFAMPRIDINE [Suspect]
     Active Substance: DALFAMPRIDINE
     Indication: Multiple sclerosis
     Route: 048

REACTIONS (12)
  - Arrhythmia [Not Recovered/Not Resolved]
  - Asthenia [Not Recovered/Not Resolved]
  - Decreased immune responsiveness [Not Recovered/Not Resolved]
  - Dysstasia [Not Recovered/Not Resolved]
  - Fatigue [Not Recovered/Not Resolved]
  - Herpes zoster [Not Recovered/Not Resolved]
  - Hypoacusis [Not Recovered/Not Resolved]
  - Hypotonia [Not Recovered/Not Resolved]
  - Musculoskeletal disorder [Not Recovered/Not Resolved]
  - Post procedural pneumonia [Not Recovered/Not Resolved]
  - Road traffic accident [Not Recovered/Not Resolved]
  - Stress [Not Recovered/Not Resolved]
